FAERS Safety Report 8925855 (Version 1)
Quarter: 2012Q4

REPORT INFORMATION
  Report Type: 
  Country: US (occurrence: US)
  Receive Date: 20121126
  Receipt Date: 20121126
  Transmission Date: 20130627
  Serious: Yes (Other)
  Sender: FDA-Public Use
  Company Number: US-ASTRAZENECA-2012SE86567

PATIENT
  Age: 74 Year
  Sex: Male
  Weight: 104.3 kg

DRUGS (6)
  1. SYMBICORT [Suspect]
     Indication: CHRONIC OBSTRUCTIVE PULMONARY DISEASE
     Dosage: 160 MCG TWO TIMES A DAY
     Route: 055
     Dates: start: 201205
  2. SYMBICORT [Suspect]
     Indication: EMPHYSEMA
     Dosage: 160 MCG TWO TIMES A DAY
     Route: 055
     Dates: start: 201205
  3. LOSARTAN [Concomitant]
     Indication: HYPERTENSION
     Route: 048
  4. ASPIRIN [Concomitant]
     Indication: CARDIAC VALVE DISEASE
     Route: 048
  5. ALFUZOSIN [Concomitant]
     Indication: PROSTATIC DISORDER
     Dosage: DAILY
     Route: 048
  6. MIROLAX [Concomitant]
     Indication: CONSTIPATION
     Route: 048

REACTIONS (6)
  - Retinal neovascularisation [Not Recovered/Not Resolved]
  - Retinal haemorrhage [Unknown]
  - Visual impairment [Unknown]
  - Hearing impaired [Not Recovered/Not Resolved]
  - Tinnitus [Unknown]
  - Oral candidiasis [Recovered/Resolved]
